FAERS Safety Report 10924671 (Version 2)
Quarter: 2015Q2

REPORT INFORMATION
  Report Type: Spontaneous
  Country: US (occurrence: US)
  Receive Date: 20150318
  Receipt Date: 20150524
  Transmission Date: 20150821
  Serious: No
  Sender: FDA-Public Use
  Company Number: US-JNJFOC-20120601280

PATIENT
  Age: 58 Year
  Sex: Female
  Weight: 54.43 kg

DRUGS (4)
  1. NIZORAL A-D [Suspect]
     Active Substance: KETOCONAZOLE
     Route: 061
  2. NIZORAL A-D [Suspect]
     Active Substance: KETOCONAZOLE
     Indication: PSORIASIS
     Dosage: DOSAGE: EVERY 3 DAYS
     Route: 061
  3. ESTROGEN [Concomitant]
     Active Substance: ESTRONE\SUS SCROFA OVARY
     Indication: BLOOD OESTROGEN
     Route: 065
  4. FLUOCINONIDE. [Concomitant]
     Active Substance: FLUOCINONIDE
     Indication: PSORIASIS
     Dosage: 0.05%
     Route: 065

REACTIONS (2)
  - Product use issue [Not Recovered/Not Resolved]
  - Therapeutic response unexpected [Unknown]
